FAERS Safety Report 10590629 (Version 4)
Quarter: 2015Q2

REPORT INFORMATION
  Report Type: Spontaneous
  Country: US (occurrence: US)
  Receive Date: 20141118
  Receipt Date: 20150424
  Transmission Date: 20150821
  Serious: Yes (Death)
  Sender: FDA-Public Use
  Company Number: US-PFIZER INC-2014311143

PATIENT
  Age: 64 Year
  Sex: Female

DRUGS (13)
  1. ALPRAZOLAM. [Concomitant]
     Active Substance: ALPRAZOLAM
     Dosage: 0.5 MG, 3X/DAY (TAKE 1 TABLET 3 TIMES DAILY AS NEEDED)
     Route: 048
  2. WARFARIN SODIUM. [Concomitant]
     Active Substance: WARFARIN SODIUM
     Indication: TRANSIENT ISCHAEMIC ATTACK
  3. SYMBICORT 160-4.5 [Concomitant]
     Indication: CHRONIC OBSTRUCTIVE PULMONARY DISEASE
     Dosage: UNK (INHALE 2 PUFFS TWICE DAILY)
  4. BUMEX [Concomitant]
     Active Substance: BUMETANIDE
     Indication: DIASTOLIC DYSFUNCTION
     Dosage: 1 MG, 1X/DAY
  5. SPIRIVA [Concomitant]
     Active Substance: TIOTROPIUM BROMIDE MONOHYDRATE
     Indication: CHRONIC OBSTRUCTIVE PULMONARY DISEASE
     Dosage: 1 CAPSULE, 1X/DAY
     Route: 055
  6. ACETAMINOPHEN-CODEINE [Concomitant]
     Active Substance: ACETAMINOPHEN\CODEINE PHOSPHATE
     Indication: PAIN
     Dosage: UNK, 4X/DAY (300-30 MG TAKE 1 TABLET 4 TIMES DAILY AS NEEDED)
     Route: 048
  7. METOPROLOL TARTRATE. [Concomitant]
     Active Substance: METOPROLOL TARTRATE
     Indication: DIASTOLIC DYSFUNCTION
     Dosage: 12.5 MG, 2X/DAY (TAKE 1/2 TABLET TWICE DAILY)
     Route: 048
  8. REVATIO [Suspect]
     Active Substance: SILDENAFIL CITRATE
     Indication: PULMONARY HYPERTENSION
     Dosage: 10 MG, 3X/DAY
  9. METFORMIN HCI [Concomitant]
     Indication: DIABETES MELLITUS
     Dosage: 1000 MG, 2X/DAY (TAKE 1 TABLET EVERY 12 HOURS DAILY)
     Route: 048
  10. RESTORIL [Concomitant]
     Active Substance: TEMAZEPAM
     Indication: ROUTINE HEALTH MAINTENANCE
     Dosage: 15 MG, AS NEEDED (TAKE 1 CAPSULE AT BEDTIME AS NEEDED)
     Route: 048
  11. PROVENTIL HFA [Concomitant]
     Active Substance: ALBUTEROL SULFATE
     Indication: CHRONIC OBSTRUCTIVE PULMONARY DISEASE
     Dosage: UNK, AS NEEDED (1 TO 2 PUFFS EVERY 4 TO 6 HOURS)
     Route: 055
  12. RESTORIL [Concomitant]
     Active Substance: TEMAZEPAM
     Indication: SLEEP DISORDER
  13. WARFARIN SODIUM. [Concomitant]
     Active Substance: WARFARIN SODIUM
     Indication: ATRIAL FIBRILLATION
     Dosage: 5 MG, DAILY
     Route: 048

REACTIONS (1)
  - Death [Fatal]

NARRATIVE: CASE EVENT DATE: 20141106
